FAERS Safety Report 10675355 (Version 3)
Quarter: 2016Q1

REPORT INFORMATION
  Report Type: Report from Study
  Country: DE (occurrence: DE)
  Receive Date: 20141224
  Receipt Date: 20160212
  Transmission Date: 20160525
  Serious: Yes (Other)
  Sender: FDA-Public Use
  Company Number: DE-CELGENE-062-21880-12050478

PATIENT

DRUGS (3)
  1. DEXAMETHASONE. [Concomitant]
     Active Substance: DEXAMETHASONE
     Indication: PLASMA CELL MYELOMA
     Route: 065
  2. REVLIMID [Suspect]
     Active Substance: LENALIDOMIDE
     Indication: PLASMA CELL MYELOMA
     Route: 048
  3. REVLIMID [Suspect]
     Active Substance: LENALIDOMIDE
     Dosage: 5 - 25 MG
     Route: 048

REACTIONS (25)
  - Immune system disorder [Unknown]
  - Renal disorder [Unknown]
  - Lymphatic disorder [Unknown]
  - Respiratory disorder [Unknown]
  - Musculoskeletal disorder [Unknown]
  - Plasma cell myeloma [Unknown]
  - Visual impairment [Unknown]
  - Tachycardia [Unknown]
  - Gastrointestinal disorder [Unknown]
  - Polyneuropathy [Unknown]
  - Cardiac disorder [Unknown]
  - Pain [Unknown]
  - Dizziness [Unknown]
  - General symptom [Unknown]
  - Hyperhidrosis [Unknown]
  - Bone marrow disorder [Unknown]
  - Hypersensitivity [Unknown]
  - Metabolic disorder [Unknown]
  - Angiopathy [Unknown]
  - Infection [Unknown]
  - Skin disorder [Unknown]
  - Erectile dysfunction [Unknown]
  - Haemorrhage [Unknown]
  - Nervous system disorder [Unknown]
  - Toxicity to various agents [Unknown]
